FAERS Safety Report 25936761 (Version 1)
Quarter: 2025Q4

REPORT INFORMATION
  Report Type: Spontaneous
  Country: US (occurrence: US)
  Receive Date: 20251017
  Receipt Date: 20251017
  Transmission Date: 20260117
  Serious: Yes (Hospitalization)
  Sender: Alora Pharma
  Company Number: US-VERTICAL PHARMACEUTICALS-2025ALO02550

PATIENT
  Age: 40 Year
  Sex: Female

DRUGS (4)
  1. SUFENTANIL [Suspect]
     Active Substance: SUFENTANIL
     Dosage: UNK
     Route: 051
  2. SUFENTANIL [Suspect]
     Active Substance: SUFENTANIL
     Dosage: 14 ?G
     Route: 051
  3. BACLOFEN [Suspect]
     Active Substance: BACLOFEN
     Dosage: UNK
     Route: 051
  4. BACLOFEN [Suspect]
     Active Substance: BACLOFEN
     Dosage: 14 ?G
     Route: 051

REACTIONS (3)
  - Depressed level of consciousness [Recovered/Resolved]
  - Accidental exposure to product [Unknown]
  - Medication error [Unknown]

NARRATIVE: CASE EVENT DATE: 20240620
